FAERS Safety Report 16674267 (Version 1)
Quarter: 2019Q3

REPORT INFORMATION
  Report Type: Spontaneous
  Country: IL (occurrence: IL)
  Receive Date: 20190806
  Receipt Date: 20190806
  Transmission Date: 20191004
  Serious: Yes (Other)
  Sender: FDA-Public Use
  Company Number: IL-INCYTE CORPORATION-2019IN007778

PATIENT

DRUGS (1)
  1. JAKAVI [Suspect]
     Active Substance: RUXOLITINIB
     Indication: MYELOFIBROSIS
     Dosage: 15 MG, 10 MG IN THE MORNING (10 AM), AND 5 MG IN THE EVENING (5 PM)
     Route: 065

REACTIONS (6)
  - Abdominal distension [Unknown]
  - Fatigue [Unknown]
  - Gastric haemorrhage [Unknown]
  - Coagulation time prolonged [Unknown]
  - Rash [Unknown]
  - Splenomegaly [Unknown]
